FAERS Safety Report 12292764 (Version 1)
Quarter: 2016Q2

REPORT INFORMATION
  Report Type: Report from Study
  Country: US (occurrence: US)
  Receive Date: 20160421
  Receipt Date: 20160421
  Transmission Date: 20160815
  Serious: No
  Sender: FDA-Public Use
  Company Number: US-AMGEN-USASL2016032362

PATIENT
  Age: 57 Year
  Sex: Male

DRUGS (2)
  1. EPIPEN [Concomitant]
     Active Substance: EPINEPHRINE
     Indication: DIABETES MELLITUS
  2. REPATHA [Suspect]
     Active Substance: EVOLOCUMAB
     Indication: DYSLIPIDAEMIA
     Dosage: 140 MG, Q2WK
     Route: 065
     Dates: start: 20160311

REACTIONS (4)
  - Injury associated with device [Unknown]
  - Drug administered at inappropriate site [Unknown]
  - Nervousness [Unknown]
  - Underdose [Unknown]

NARRATIVE: CASE EVENT DATE: 20160311
